FAERS Safety Report 9259634 (Version 2)
Quarter: 2013Q3

REPORT INFORMATION
  Report Type: Spontaneous
  Country: US (occurrence: US)
  Receive Date: 20130429
  Receipt Date: 20130703
  Transmission Date: 20140515
  Serious: Yes (Other)
  Sender: FDA-Public Use
  Company Number: US-BIOGENIDEC-2013BI035559

PATIENT
  Sex: Female

DRUGS (1)
  1. AVONEX [Suspect]
     Indication: MULTIPLE SCLEROSIS
     Route: 030
     Dates: start: 20121201

REACTIONS (14)
  - Cerebrovascular accident [Recovered/Resolved]
  - Poor peripheral circulation [Not Recovered/Not Resolved]
  - Aphasia [Recovered/Resolved]
  - Abasia [Recovered/Resolved with Sequelae]
  - Hypoaesthesia [Not Recovered/Not Resolved]
  - Musculoskeletal disorder [Not Recovered/Not Resolved]
  - Stress [Not Recovered/Not Resolved]
  - Extremity contracture [Unknown]
  - Device breakage [Not Recovered/Not Resolved]
  - Memory impairment [Not Recovered/Not Resolved]
  - Face injury [Unknown]
  - Pain in extremity [Not Recovered/Not Resolved]
  - Vasodilatation [Not Recovered/Not Resolved]
  - Emotional disorder [Unknown]
